APPROVED DRUG PRODUCT: E-BASE
Active Ingredient: ERYTHROMYCIN
Strength: 333MG
Dosage Form/Route: TABLET, DELAYED RELEASE;ORAL
Application: A063086 | Product #001
Applicant: BARR LABORATORIES INC
Approved: May 15, 1990 | RLD: No | RS: No | Type: DISCN